FAERS Safety Report 9006137 (Version 11)
Quarter: 2016Q2

REPORT INFORMATION
  Report Type: Report from Study
  Country: CA (occurrence: CA)
  Receive Date: 20130109
  Receipt Date: 20160405
  Transmission Date: 20160815
  Serious: No
  Sender: FDA-Public Use
  Company Number: PHHY2012CA123290

PATIENT
  Sex: Female

DRUGS (5)
  1. DETROL [Concomitant]
     Active Substance: TOLTERODINE TARTRATE
     Indication: PRODUCT USED FOR UNKNOWN INDICATION
     Route: 065
  2. TASIGNA [Suspect]
     Active Substance: NILOTINIB
     Indication: CHRONIC MYELOID LEUKAEMIA
     Dosage: 400 MG, BID
     Route: 048
     Dates: start: 20100806
  3. PARIET [Concomitant]
     Active Substance: RABEPRAZOLE SODIUM
     Indication: PRODUCT USED FOR UNKNOWN INDICATION
     Route: 065
  4. FLUVACCINE [Concomitant]
     Active Substance: INFLUENZA VIRUS VACCINE
     Indication: INFLUENZA
     Route: 065
  5. DIOVAN [Concomitant]
     Active Substance: VALSARTAN
     Indication: PRODUCT USED FOR UNKNOWN INDICATION
     Route: 065

REACTIONS (24)
  - General physical health deterioration [Unknown]
  - Sinusitis [Not Recovered/Not Resolved]
  - Nasopharyngitis [Not Recovered/Not Resolved]
  - Headache [Unknown]
  - Dizziness [Unknown]
  - Weight fluctuation [Recovering/Resolving]
  - Dyspepsia [Unknown]
  - Hypoaesthesia [Not Recovered/Not Resolved]
  - Abdominal distension [Unknown]
  - Breast pain [Unknown]
  - Malaise [Unknown]
  - Flatulence [Unknown]
  - Peripheral swelling [Unknown]
  - Musculoskeletal pain [Unknown]
  - Hypertension [Unknown]
  - Pain in extremity [Unknown]
  - Initial insomnia [Unknown]
  - Gastrooesophageal reflux disease [Unknown]
  - Peripheral coldness [Unknown]
  - Decreased appetite [Unknown]
  - Fatigue [Unknown]
  - Paraesthesia [Not Recovered/Not Resolved]
  - Pruritus generalised [Unknown]
  - Urinary tract infection [Unknown]
